FAERS Safety Report 7348488-0 (Version None)
Quarter: 2011Q1

REPORT INFORMATION
  Report Type: 
  Country: None (occurrence: None)
  Receive Date: 20110314
  Receipt Date: 20110302
  Transmission Date: 20110831
  Serious: Yes (Hospitalization)
  Sender: FDA-Public Use
  Company Number: US-ASTRAZENECA-2011SE11801

PATIENT
  Age: 69 Year
  Sex: Male

DRUGS (5)
  1. ASPIRIN [Concomitant]
  2. PRILOSEC [Concomitant]
  3. IBUPROFEN [Concomitant]
  4. GENUVIA [Concomitant]
  5. NEXIUM [Suspect]
     Route: 048

REACTIONS (3)
  - TYPE 2 DIABETES MELLITUS [None]
  - IRRITABLE BOWEL SYNDROME [None]
  - VASCULAR GRAFT [None]
